FAERS Safety Report 6767996-4 (Version None)
Quarter: 2010Q2

REPORT INFORMATION
  Report Type: 
  Country: None (occurrence: None)
  Receive Date: 20100614
  Receipt Date: 20100607
  Transmission Date: 20101027
  Serious: Yes (Other)
  Sender: FDA-Public Use
  Company Number: A0863329A

PATIENT
  Sex: Male

DRUGS (3)
  1. LAMICTAL [Suspect]
     Indication: DEPRESSION
     Dosage: 100MG UNKNOWN
     Route: 048
  2. TEMODAR [Suspect]
     Indication: BRAIN NEOPLASM
     Route: 065
  3. RADIATION THERAPY [Concomitant]

REACTIONS (4)
  - BONE MARROW DISORDER [None]
  - DEPRESSION [None]
  - DRUG INEFFECTIVE [None]
  - PLATELET PRODUCTION DECREASED [None]
